FAERS Safety Report 4612849-0 (Version None)
Quarter: 2005Q1

REPORT INFORMATION
  Report Type: 
  Country: None (occurrence: None)
  Receive Date: 20050318
  Receipt Date: 20050315
  Transmission Date: 20050727
  Serious: Yes (Hospitalization)
  Sender: FDA-Public Use
  Company Number: US-MERCK-0503USA02390

PATIENT
  Age: 72 Year
  Sex: Female

DRUGS (7)
  1. VIOXX [Suspect]
     Indication: PAIN
     Route: 048
     Dates: start: 20000101, end: 20040901
  2. SOTALOL HYDROCHLORIDE [Concomitant]
     Route: 065
  3. BUMETANIDE [Concomitant]
     Route: 065
  4. NORVASC [Concomitant]
     Route: 065
  5. WARFARIN [Concomitant]
     Route: 065
  6. PROTONIX [Concomitant]
     Route: 065
  7. BENICAR [Concomitant]
     Route: 065

REACTIONS (1)
  - ANGINA PECTORIS [None]
